FAERS Safety Report 18247434 (Version 3)
Quarter: 2021Q1

REPORT INFORMATION
  Report Type: Spontaneous
  Country: JP (occurrence: JP)
  Receive Date: 20200909
  Receipt Date: 20210317
  Transmission Date: 20210419
  Serious: Yes (Hospitalization, Other)
  Sender: FDA-Public Use
  Company Number: JP-009507513-2009JPN000440J

PATIENT
  Age: 73 Year
  Sex: Male
  Weight: 180 kg

DRUGS (4)
  1. KEYTRUDA [Suspect]
     Active Substance: PEMBROLIZUMAB
     Indication: LUNG SQUAMOUS CELL CARCINOMA STAGE III
     Dosage: 200 MILLIGRAM/4 WEEKS
     Route: 041
     Dates: start: 20200407, end: 20200623
  2. ABRAXANE [Suspect]
     Active Substance: PACLITAXEL
     Indication: LUNG SQUAMOUS CELL CARCINOMA STAGE III
     Dosage: 193 MILLIGRAM/SQ. TWICE IN FOUR WEEKS
     Route: 041
     Dates: start: 20200407, end: 20200630
  3. CARBOPLATIN. [Suspect]
     Active Substance: CARBOPLATIN
     Indication: LUNG SQUAMOUS CELL CARCINOMA STAGE III
     Dosage: 525 MILLIGRAM,/4 WEEKS
     Route: 041
     Dates: start: 20200407, end: 20200526
  4. CARBOPLATIN. [Suspect]
     Active Substance: CARBOPLATIN
     Dosage: 450 MILLIGRAM, EVERY 4 WEEKS
     Route: 041
     Dates: start: 20200623, end: 20200623

REACTIONS (7)
  - Spinal compression fracture [Recovering/Resolving]
  - Malignant neoplasm progression [Recovering/Resolving]
  - Off label use [Unknown]
  - Interstitial lung disease [Recovering/Resolving]
  - Febrile neutropenia [Recovered/Resolved]
  - Ileus [Recovered/Resolved]
  - Neutrophilic dermatosis [Recovering/Resolving]

NARRATIVE: CASE EVENT DATE: 2020
